FAERS Safety Report 14801362 (Version 1)
Quarter: 2018Q2

REPORT INFORMATION
  Report Type: Spontaneous
  Country: CN (occurrence: CN)
  Receive Date: 20180424
  Receipt Date: 20180424
  Transmission Date: 20180711
  Serious: Yes (Other)
  Sender: FDA-Public Use
  Company Number: CN-ROCHE-2111821

PATIENT
  Age: 68 Year
  Sex: Male

DRUGS (3)
  1. MOTILIUM [Concomitant]
     Active Substance: DOMPERIDONE
  2. L-OHP [Suspect]
     Active Substance: OXALIPLATIN
     Indication: MALIGNANT NEOPLASM OF AMPULLA OF VATER
     Route: 065
     Dates: start: 20091230
  3. XELODA [Suspect]
     Active Substance: CAPECITABINE
     Indication: MALIGNANT NEOPLASM OF AMPULLA OF VATER
     Route: 065
     Dates: start: 20091230

REACTIONS (3)
  - Neurotoxicity [Unknown]
  - Gastrointestinal disorder [Unknown]
  - Bone marrow toxicity [Unknown]
